FAERS Safety Report 10398255 (Version 2)
Quarter: 2014Q3

REPORT INFORMATION
  Report Type: Spontaneous
  Country: JP (occurrence: JP)
  Receive Date: 20140821
  Receipt Date: 20140902
  Transmission Date: 20150326
  Serious: No
  Sender: FDA-Public Use
  Company Number: JP-JNJFOC-20140809462

PATIENT
  Sex: Female

DRUGS (1)
  1. DUROTEP MT [Suspect]
     Active Substance: FENTANYL
     Indication: PRODUCT USED FOR UNKNOWN INDICATION
     Route: 062

REACTIONS (3)
  - Dermatitis [Unknown]
  - Pigmentation disorder [Unknown]
  - Drug administered at inappropriate site [Unknown]
